FAERS Safety Report 18493543 (Version 4)
Quarter: 2021Q4

REPORT INFORMATION
  Report Type: Report from Study
  Country: US (occurrence: US)
  Receive Date: 20201112
  Receipt Date: 20211108
  Transmission Date: 20220303
  Serious: Yes (Disabling, Other)
  Sender: FDA-Public Use
  Company Number: US-TAKEDA-2020TUS047543

PATIENT
  Sex: Female

DRUGS (2)
  1. VEDOLIZUMAB [Suspect]
     Active Substance: VEDOLIZUMAB
     Indication: Crohn^s disease
     Dosage: 300 MILLIGRAM
     Route: 042
  2. TUMS [Suspect]
     Active Substance: CALCIUM CARBONATE
     Indication: Gastrooesophageal reflux disease
     Dosage: UNK
     Route: 065

REACTIONS (11)
  - Anorectal operation [Unknown]
  - Shoulder operation [Unknown]
  - Knee operation [Unknown]
  - Limb operation [Unknown]
  - Disability [Unknown]
  - Crohn^s disease [Unknown]
  - Blood calcium increased [Unknown]
  - Asthma [Unknown]
  - Multiple allergies [Unknown]
  - Eczema [Unknown]
  - Upper respiratory tract infection [Unknown]
